FAERS Safety Report 5802275-0 (Version None)
Quarter: 2008Q3

REPORT INFORMATION
  Report Type: 
  Country: None (occurrence: None)
  Receive Date: 20080702
  Receipt Date: 20080617
  Transmission Date: 20090109
  Serious: Yes (Other)
  Sender: FDA-Public Use
  Company Number: DSJ-2008-07355

PATIENT
  Age: 10 Decade
  Sex: Female

DRUGS (2)
  1. OLMESARTAN MEDOXOMIL [Suspect]
     Indication: HYPERTENSION
     Dosage: 20 MG, PER ORAL
     Route: 048
     Dates: start: 20080501
  2. NORVASC [Suspect]
     Indication: HYPERTENSION
     Dates: start: 20080501

REACTIONS (1)
  - PLATELET COUNT DECREASED [None]
